FAERS Safety Report 6983471-6 (Version None)
Quarter: 2010Q3

REPORT INFORMATION
  Report Type: 
  Country: None (occurrence: None)
  Receive Date: 20100914
  Receipt Date: 20080707
  Transmission Date: 20110219
  Serious: No
  Sender: FDA-Public Use
  Company Number: US-WYE-H04185008

PATIENT
  Age: 90 Year
  Sex: Female

DRUGS (5)
  1. ADVIL LIQUI-GELS [Suspect]
     Indication: ANALGESIC THERAPY
     Dosage: 3 CAPLETS, 3 TIMES DAILY PER PHYSICIAN
     Route: 048
     Dates: start: 20080301
  2. ADVIL LIQUI-GELS [Suspect]
     Dosage: 4 CAPETS AT 1 TIME
     Route: 048
     Dates: start: 20080101, end: 20080101
  3. ADVIL LIQUI-GELS [Suspect]
     Dosage: 3 CAPLETS, 2-3 TIMES DAILY
     Route: 048
     Dates: start: 20080101, end: 20080101
  4. TUMS [Concomitant]
  5. ATENOLOL [Concomitant]

REACTIONS (3)
  - DIZZINESS [None]
  - DRUG EFFECT DECREASED [None]
  - INCORRECT DOSE ADMINISTERED [None]
